FAERS Safety Report 25549315 (Version 3)
Quarter: 2025Q4

REPORT INFORMATION
  Report Type: Report from Study
  Country: US (occurrence: US)
  Receive Date: 20250714
  Receipt Date: 20251008
  Transmission Date: 20260117
  Serious: Yes (Other)
  Sender: MALLINCKRODT
  Company Number: US-MALLINCKRODT-MNK202503774

PATIENT
  Sex: Female

DRUGS (5)
  1. CORTICOTROPIN [Suspect]
     Active Substance: CORTICOTROPIN
     Indication: Sarcoidosis
     Dosage: 80 UNITS
     Route: 058
     Dates: start: 20151201, end: 2020
  2. CORTICOTROPIN [Suspect]
     Active Substance: CORTICOTROPIN
     Dosage: UNKNOWN (LOWER DOSE)
     Dates: start: 20240314
  3. PROLIA [Concomitant]
     Active Substance: DENOSUMAB
     Dosage: UNKNOWN
  4. CANNABIDIOL [Concomitant]
     Active Substance: CANNABIDIOL
     Dosage: UNKNOWN
  5. CRESTOR [Concomitant]
     Active Substance: ROSUVASTATIN CALCIUM
     Dosage: UNKNOWN

REACTIONS (9)
  - Dental restoration failure [Unknown]
  - Dental implantation [Unknown]
  - Dental caries [Unknown]
  - Alopecia [Unknown]
  - Needle issue [Unknown]
  - Frustration tolerance decreased [Unknown]
  - Back disorder [Unknown]
  - Gingival abscess [Not Recovered/Not Resolved]
  - Underdose [Unknown]
